FAERS Safety Report 5920951-6 (Version None)
Quarter: 2008Q4

REPORT INFORMATION
  Report Type: 
  Country: None (occurrence: None)
  Receive Date: 20081016
  Receipt Date: 20081009
  Transmission Date: 20090506
  Serious: Yes (Hospitalization)
  Sender: FDA-Public Use
  Company Number: US-JNJFOC-20070107821

PATIENT
  Sex: Female
  Weight: 59.24 kg

DRUGS (2)
  1. ORTHO EVRA [Suspect]
     Indication: CONTRACEPTION
     Route: 062
  2. ASPRIRIN 81 MG [Concomitant]
     Route: 065

REACTIONS (1)
  - MUSCULOSKELETAL CHEST PAIN [None]
